FAERS Safety Report 8746890 (Version 2)
Quarter: 2013Q4

REPORT INFORMATION
  Report Type: Spontaneous
  Country: US (occurrence: US)
  Receive Date: 20120827
  Receipt Date: 20131101
  Transmission Date: 20140711
  Serious: No
  Sender: FDA-Public Use
  Company Number: US-009507513-1208USA004918

PATIENT
  Age: 50 Year
  Sex: Female

DRUGS (8)
  1. REBETOL [Suspect]
     Route: 048
  2. PEGINTRON [Suspect]
     Dosage: 150 MICROGRAM, QW
     Route: 058
  3. PRILOSEC [Concomitant]
     Route: 048
  4. ESTRADIOL [Concomitant]
  5. NORTRIPTYLINE [Concomitant]
  6. LISINOPRIL [Concomitant]
  7. ATENOLOL [Concomitant]
  8. ZYRTEC [Concomitant]

REACTIONS (3)
  - Fatigue [Unknown]
  - Headache [Unknown]
  - Nausea [Unknown]
